FAERS Safety Report 13937617 (Version 1)
Quarter: 2017Q3

REPORT INFORMATION
  Report Type: Spontaneous
  Country: JP (occurrence: JP)
  Receive Date: 20170905
  Receipt Date: 20170905
  Transmission Date: 20171127
  Serious: Yes (Other)
  Sender: FDA-Public Use
  Company Number: JP-PFIZER INC-2017137558

PATIENT
  Age: 82 Year
  Sex: Female
  Weight: 49.3 kg

DRUGS (2)
  1. LYRICA [Suspect]
     Active Substance: PREGABALIN
     Dosage: 75 MG, DAILY, AFTER DINNER
     Route: 048
     Dates: start: 20170308, end: 20170314
  2. CALONAL [Suspect]
     Active Substance: ACETAMINOPHEN
     Dosage: 300 MG, 3X/DAY
     Route: 048
     Dates: start: 20170308

REACTIONS (5)
  - Hepatic function abnormal [Recovering/Resolving]
  - Pyelonephritis [Unknown]
  - Haematuria [Unknown]
  - Renal impairment [Recovering/Resolving]
  - Pyrexia [Unknown]

NARRATIVE: CASE EVENT DATE: 20170310
